FAERS Safety Report 11377861 (Version 1)
Quarter: 2015Q3

REPORT INFORMATION
  Report Type: Spontaneous
  Country: US (occurrence: US)
  Receive Date: 20150811
  Receipt Date: 20150811
  Transmission Date: 20151125
  Serious: No
  Sender: FDA-Public Use
  Company Number: US-ELI_LILLY_AND_COMPANY-US200909007104

PATIENT
  Age: 50 Year
  Sex: Female

DRUGS (3)
  1. HUMULIN R [Suspect]
     Active Substance: INSULIN HUMAN
  2. ANESTHETICS [Concomitant]
     Active Substance: UNSPECIFIED INGREDIENT
  3. HUMULIN N [Suspect]
     Active Substance: INSULIN HUMAN
     Dosage: UNK, AS NEEDED

REACTIONS (4)
  - Surgery [Recovered/Resolved]
  - Appetite disorder [Recovered/Resolved]
  - Poor quality drug administered [Unknown]
  - Blood glucose fluctuation [Recovered/Resolved]

NARRATIVE: CASE EVENT DATE: 20090925
